FAERS Safety Report 12247492 (Version 1)
Quarter: 2016Q2

REPORT INFORMATION
  Report Type: Spontaneous
  Country: US (occurrence: US)
  Receive Date: 20160407
  Receipt Date: 20160407
  Transmission Date: 20160815
  Serious: No
  Sender: FDA-Public Use
  Company Number: US-GILEAD-2016-0206679

PATIENT
  Age: 80 Year
  Sex: Female

DRUGS (2)
  1. ZYDELIG [Suspect]
     Active Substance: IDELALISIB
     Indication: LYMPHOMA
     Route: 065
  2. RITUXAN [Concomitant]
     Active Substance: RITUXIMAB

REACTIONS (2)
  - Mucocutaneous rash [Unknown]
  - Stomatitis [Unknown]

NARRATIVE: CASE EVENT DATE: 201507
